FAERS Safety Report 4823485-5 (Version None)
Quarter: 2005Q4

REPORT INFORMATION
  Report Type: 
  Country: None (occurrence: None)
  Receive Date: 20051107
  Receipt Date: 20051101
  Transmission Date: 20060501
  Serious: Yes (Hospitalization)
  Sender: FDA-Public Use
  Company Number: S05-USA-04814-01

PATIENT
  Age: 70 Year
  Sex: Male

DRUGS (3)
  1. LEXAPRO [Suspect]
     Indication: DEPRESSION
     Dosage: 20 MG QD PO
     Route: 048
     Dates: start: 20050901
  2. ATIVAN [Concomitant]
  3. PRAVACHOL [Concomitant]

REACTIONS (3)
  - FALL [None]
  - HEAD INJURY [None]
  - HYPONATRAEMIA [None]
